FAERS Safety Report 10401061 (Version 1)
Quarter: 2014Q3

REPORT INFORMATION
  Report Type: Report from Study
  Country: US (occurrence: US)
  Receive Date: 20140822
  Receipt Date: 20140822
  Transmission Date: 20150326
  Serious: Yes (Other)
  Sender: FDA-Public Use
  Company Number: US-ROCHE-1451932

PATIENT
  Age: 61 Year
  Sex: Female

DRUGS (4)
  1. CELLCEPT [Suspect]
     Active Substance: MYCOPHENOLATE MOFETIL\MYCOPHENOLATE MOFETIL HYDROCHLORIDE
     Indication: MICROSCOPIC POLYANGIITIS
  2. RITUXAN [Suspect]
     Active Substance: RITUXIMAB
     Indication: GRANULOMATOSIS WITH POLYANGIITIS
  3. RITUXAN [Suspect]
     Active Substance: RITUXIMAB
     Indication: MICROSCOPIC POLYANGIITIS
     Route: 042
  4. CELLCEPT [Suspect]
     Active Substance: MYCOPHENOLATE MOFETIL\MYCOPHENOLATE MOFETIL HYDROCHLORIDE
     Indication: GRANULOMATOSIS WITH POLYANGIITIS
     Route: 065

REACTIONS (14)
  - Hypertension [Unknown]
  - Sinusitis [Unknown]
  - Asthenia [Unknown]
  - Skin ulcer [Unknown]
  - Pleurisy [Unknown]
  - Weight decreased [Unknown]
  - Glomerulonephritis [Unknown]
  - Proteinuria [Unknown]
  - Rash [Unknown]
  - Blood creatinine increased [Unknown]
  - Dyspnoea [Unknown]
  - Haematuria [Unknown]
  - Decreased appetite [Unknown]
  - Nephrosclerosis [Unknown]
